FAERS Safety Report 16958459 (Version 2)
Quarter: 2020Q1

REPORT INFORMATION
  Report Type: Report from Study
  Country: PA (occurrence: PA)
  Receive Date: 20191024
  Receipt Date: 20200130
  Transmission Date: 20200409
  Serious: Yes (Other)
  Sender: FDA-Public Use
  Company Number: PA-SA-2019SA291519

PATIENT
  Age: 75 Year
  Sex: Female

DRUGS (1)
  1. HYDROCHLOROTHIAZIDE/IRBESARTAN [Suspect]
     Active Substance: HYDROCHLOROTHIAZIDE\IRBESARTAN
     Indication: HYPERTENSION
     Dosage: 1 DF, QD (1 ORAL TABLET OF 300 MG OF IRBESARTAN AND 25 MG OF HYDROCHLOROTHIAZIDE (COAPROVEL) EVERY 2
     Route: 048
     Dates: start: 2009, end: 201902

REACTIONS (1)
  - Renal disorder [Recovering/Resolving]

NARRATIVE: CASE EVENT DATE: 201902
